FAERS Safety Report 8544753-X (Version None)
Quarter: 2012Q3

REPORT INFORMATION
  Report Type: 
  Country: None (occurrence: None)
  Receive Date: 20120727
  Receipt Date: 20120713
  Transmission Date: 20120928
  Serious: Yes (Hospitalization)
  Sender: FDA-Public Use
  Company Number: JP-INCYTE CORPORATION-2012IN000678

PATIENT
  Sex: Male
  Weight: 24.036 kg

DRUGS (19)
  1. INC424 [Suspect]
     Dosage: 10 MG, BID
     Route: 048
     Dates: start: 20120623
  2. PREDNISOLONE [Concomitant]
     Dosage: UNK
     Dates: start: 20120412, end: 20120418
  3. INC424 [Suspect]
     Dosage: 10 MG, BID
     Dates: start: 20120509, end: 20120520
  4. URSO 250 [Concomitant]
     Dosage: UNK
     Dates: start: 20120528
  5. INC424 [Suspect]
     Dosage: 15 MG, BID
     Route: 048
     Dates: start: 20120416, end: 20120508
  6. ZOVIRAX [Concomitant]
     Dosage: UNK
     Dates: start: 20120412
  7. PROMACTA [Concomitant]
     Dosage: UNK
     Dates: start: 20120412
  8. ALLOPURINOL [Concomitant]
     Dosage: UNK
     Dates: start: 20120314
  9. CANDESARTAN CILEXETIL AND HYDROCHLOROTHIAZIDE [Concomitant]
     Dosage: UNK
     Dates: start: 20120531
  10. LASIX [Concomitant]
     Dosage: UNK
     Dates: start: 20120707
  11. FUNGIZONE [Concomitant]
     Dosage: UNK
     Dates: start: 20120608
  12. INC424 [Suspect]
     Dosage: 15 MG, BID
     Route: 048
     Dates: start: 20120521, end: 20120604
  13. INC424 [Suspect]
     Dosage: 5 MG, BID
     Route: 048
     Dates: start: 20120607, end: 20120622
  14. NORVASC [Concomitant]
     Dosage: UNK
     Dates: start: 19910101
  15. LANSOPRAZOLE [Concomitant]
     Dosage: UNK
     Dates: start: 20120412
  16. EXJADE [Concomitant]
     Dosage: UNK
     Dates: start: 20120801
  17. ENALAPRIL MALEATE [Concomitant]
     Dosage: UNK
     Dates: start: 19910101
  18. INC424 [Suspect]
     Indication: MYELOFIBROSIS
     Dosage: 20 MG, BID
     Route: 048
     Dates: start: 20120316, end: 20120415
  19. INC424 [Suspect]
     Dosage: 10 MG, BID
     Route: 048
     Dates: start: 20120605, end: 20120606

REACTIONS (3)
  - ACUTE FEBRILE NEUTROPHILIC DERMATOSIS [None]
  - CELLULITIS [None]
  - IMPETIGO [None]
